FAERS Safety Report 5354920-4 (Version None)
Quarter: 2007Q2

REPORT INFORMATION
  Report Type: 
  Country: None (occurrence: None)
  Receive Date: 20070516
  Receipt Date: 20061108
  Transmission Date: 20071010
  Serious: Yes (Other)
  Sender: FDA-Public Use
  Company Number: 2006114343

PATIENT
  Age: 22 Year
  Sex: Female
  Weight: 67.586 kg

DRUGS (2)
  1. DEPO-PROVERA [Suspect]
     Indication: CONTRACEPTION
     Dosage: 150 MG (150 MG MG, 1ST INJ., EVERY 12-13 WEEKS) 150 MG (150 MG,LAST INJECTION)
     Dates: start: 20050811, end: 20050811
  2. DEPO-PROVERA [Suspect]
     Indication: CONTRACEPTION
     Dosage: 150 MG (150 MG MG, 1ST INJ., EVERY 12-13 WEEKS) 150 MG (150 MG,LAST INJECTION)
     Dates: start: 20060801, end: 20060801

REACTIONS (1)
  - UNINTENDED PREGNANCY [None]
